FAERS Safety Report 19744033 (Version 1)
Quarter: 2021Q3

REPORT INFORMATION
  Report Type: Report from Study
  Country: ES (occurrence: ES)
  Receive Date: 20210825
  Receipt Date: 20210825
  Transmission Date: 20211014
  Serious: Yes (Hospitalization, Other)
  Sender: FDA-Public Use
  Company Number: ES-TAKEDA-ES201705482

PATIENT
  Sex: Male

DRUGS (2)
  1. IDURSULFASE [Suspect]
     Active Substance: IDURSULFASE
     Dosage: 0.41 MILLIGRAM/KILOGRAM (ALTERNATINNG WITH 0.50 MILLIGRAM/KILOGRAM), 1X/2WKS (EVERY 2 WEEKS)
     Route: 041
     Dates: start: 20150519
  2. IDURSULFASE [Suspect]
     Active Substance: IDURSULFASE
     Indication: MUCOPOLYSACCHARIDOSIS II
     Dosage: 0.46 MILLIGRAM/KILOGRAM, 1X/WEEK (EVERY WEEK)
     Route: 041
     Dates: start: 20061006

REACTIONS (2)
  - Knee deformity [Recovered/Resolved]
  - Femoroacetabular impingement [Recovered/Resolved with Sequelae]

NARRATIVE: CASE EVENT DATE: 20151028
